FAERS Safety Report 10177108 (Version 1)
Quarter: 2014Q2

REPORT INFORMATION
  Report Type: Spontaneous
  Country: US (occurrence: None)
  Receive Date: 20140515
  Receipt Date: 20140515
  Transmission Date: 20141212
  Serious: Yes (Other)
  Sender: FDA-Public Use
  Company Number: None

PATIENT
  Age: 55 Year
  Sex: Male
  Weight: 84.82 kg

DRUGS (2)
  1. ZIPRASIDONE [Suspect]
     Indication: BIPOLAR II DISORDER
     Route: 048
     Dates: start: 2008, end: 2010
  2. ZIPRASIDONE [Suspect]
     Route: 048

REACTIONS (2)
  - Drug ineffective [None]
  - Product substitution issue [None]
